FAERS Safety Report 7944012-X (Version None)
Quarter: 2011Q4

REPORT INFORMATION
  Report Type: 
  Country: None (occurrence: None)
  Receive Date: 20111128
  Receipt Date: 20111114
  Transmission Date: 20120403
  Serious: Yes (Hospitalization)
  Sender: FDA-Public Use
  Company Number: JP-ROCHE-765842

PATIENT
  Sex: Female

DRUGS (57)
  1. ACTEMRA [Suspect]
     Route: 041
     Dates: start: 20081113, end: 20081113
  2. ACTEMRA [Suspect]
     Route: 041
     Dates: start: 20081210, end: 20081210
  3. ACTEMRA [Suspect]
     Route: 041
     Dates: start: 20090827, end: 20090827
  4. ACTEMRA [Suspect]
     Route: 041
     Dates: start: 20100114, end: 20100114
  5. ACTEMRA [Suspect]
     Route: 041
     Dates: start: 20101117, end: 20101117
  6. ACTEMRA [Suspect]
     Route: 041
  7. PREDNISOLONE [Suspect]
     Route: 048
     Dates: start: 20091023, end: 20100114
  8. ATELEC [Concomitant]
     Route: 048
  9. ACTEMRA [Suspect]
     Route: 041
     Dates: start: 20090114, end: 20090114
  10. ACTEMRA [Suspect]
     Route: 041
     Dates: start: 20090922, end: 20090922
  11. ACTEMRA [Suspect]
     Route: 041
     Dates: start: 20100210, end: 20100210
  12. ACTEMRA [Suspect]
     Route: 041
     Dates: start: 20100408, end: 20100408
  13. ACTEMRA [Suspect]
     Route: 041
     Dates: start: 20100922, end: 20100922
  14. ACTEMRA [Suspect]
     Route: 041
     Dates: start: 20110126, end: 20110126
  15. ACTEMRA [Suspect]
     Route: 041
     Dates: start: 20110420, end: 20110420
  16. ACTEMRA [Suspect]
     Route: 041
     Dates: start: 20110518, end: 20110518
  17. ACTEMRA [Suspect]
     Route: 041
     Dates: start: 20090408, end: 20090408
  18. ACTEMRA [Suspect]
     Route: 041
     Dates: start: 20090702, end: 20090702
  19. FERROUS CITRATE [Concomitant]
     Route: 048
  20. FUROSEMIDE [Concomitant]
     Dosage: FORM: PERORAL AGENT
     Route: 048
  21. ACTEMRA [Suspect]
     Route: 041
     Dates: start: 20080820, end: 20080820
  22. ACTEMRA [Suspect]
     Route: 041
     Dates: start: 20080917, end: 20080917
  23. ACTEMRA [Suspect]
     Route: 041
     Dates: start: 20081015, end: 20081015
  24. AZULFIDINE [Concomitant]
     Dosage: FORM: ENTERIC COATED DRUG
     Route: 048
  25. URSO 250 [Concomitant]
     Dosage: FORM: PERORAL AGENT
     Route: 048
  26. NIZATIDINE [Concomitant]
     Dosage: FORM: PERORAL AGENT
     Route: 048
  27. NIZATIDINE [Concomitant]
     Route: 048
  28. DEPAS [Concomitant]
     Dosage: FORM: PERORAL AGENT
     Route: 048
  29. CANDESARTAN CILEXETIL [Concomitant]
     Route: 048
  30. ACTEMRA [Suspect]
     Route: 041
     Dates: start: 20080723, end: 20080723
  31. ACTEMRA [Suspect]
     Route: 041
     Dates: start: 20090730, end: 20090730
  32. ACTEMRA [Suspect]
     Route: 041
  33. ACTEMRA [Suspect]
     Route: 041
     Dates: start: 20100729, end: 20100729
  34. ACTEMRA [Suspect]
     Route: 041
     Dates: start: 20101020, end: 20101020
  35. MAGMITT [Concomitant]
     Route: 048
  36. ACTEMRA [Suspect]
     Indication: RHEUMATOID ARTHRITIS
     Route: 041
     Dates: start: 20080627, end: 20080627
  37. ACTEMRA [Suspect]
     Route: 041
     Dates: start: 20090212, end: 20090212
  38. ACTEMRA [Suspect]
     Route: 041
     Dates: start: 20090312, end: 20090312
  39. ACTEMRA [Suspect]
     Route: 041
     Dates: start: 20100506, end: 20100506
  40. CANDESARTAN CILEXETIL [Concomitant]
     Route: 048
  41. VOLTAREN [Concomitant]
     Route: 054
  42. ACTEMRA [Suspect]
     Route: 041
     Dates: start: 20090507, end: 20090507
  43. ACTEMRA [Suspect]
     Route: 041
     Dates: start: 20090604, end: 20090604
  44. ACTEMRA [Suspect]
     Route: 041
     Dates: start: 20091022, end: 20091022
  45. ACTEMRA [Suspect]
     Route: 041
     Dates: start: 20091119, end: 20091119
  46. ACTEMRA [Suspect]
     Route: 041
     Dates: start: 20110223, end: 20110223
  47. PREDNISOLONE [Suspect]
     Indication: RHEUMATOID ARTHRITIS
     Route: 048
  48. PREDNISOLONE [Suspect]
     Route: 048
     Dates: start: 20100115, end: 20100626
  49. FUROSEMIDE [Concomitant]
     Dosage: FORM: PERORAL AGENT
     Route: 048
  50. ACTEMRA [Suspect]
     Route: 041
     Dates: start: 20091217, end: 20091217
  51. ACTEMRA [Suspect]
     Route: 041
     Dates: start: 20100311, end: 20100311
  52. ACTEMRA [Suspect]
     Route: 041
     Dates: start: 20100701, end: 20100701
  53. ACTEMRA [Suspect]
     Route: 041
     Dates: start: 20100826, end: 20100826
  54. ACTEMRA [Suspect]
     Route: 041
     Dates: start: 20101222, end: 20101222
  55. ACTEMRA [Suspect]
     Route: 041
     Dates: start: 20110323, end: 20110323
  56. ISALON [Concomitant]
     Dosage: FORM: PERORAL AGENT
     Route: 048
  57. DOXAZOSIN MESYLATE [Concomitant]
     Route: 048

REACTIONS (8)
  - ANAEMIA [None]
  - BILE DUCT STONE [None]
  - HYPERTENSION [None]
  - BACTERAEMIA [None]
  - CHOLANGITIS ACUTE [None]
  - UROSEPSIS [None]
  - OXYGEN SATURATION DECREASED [None]
  - CELLULITIS [None]
